FAERS Safety Report 5812731-7 (Version None)
Quarter: 2008Q3

REPORT INFORMATION
  Report Type: 
  Country: None (occurrence: None)
  Receive Date: 20080717
  Receipt Date: 20080710
  Transmission Date: 20090109
  Serious: Yes (Other)
  Sender: FDA-Public Use
  Company Number: US-AMGEN-QUU293739

PATIENT
  Sex: Female

DRUGS (3)
  1. EPOGEN [Suspect]
     Indication: DIALYSIS
  2. ARANESP [Suspect]
     Indication: DIALYSIS
  3. UNSPECIFIED MEDICATION [Concomitant]

REACTIONS (4)
  - ASTHMA [None]
  - CHRONIC OBSTRUCTIVE PULMONARY DISEASE [None]
  - HYPERSENSITIVITY [None]
  - PRURITUS [None]
